FAERS Safety Report 7382418-0 (Version None)
Quarter: 2011Q1

REPORT INFORMATION
  Report Type: 
  Country: None (occurrence: None)
  Receive Date: 20110329
  Receipt Date: 20110314
  Transmission Date: 20110831
  Serious: Yes (Other)
  Sender: FDA-Public Use
  Company Number: US-BAYER-201031168NA

PATIENT
  Sex: Female

DRUGS (2)
  1. YASMIN [Suspect]
     Indication: PRODUCT USED FOR UNKNOWN INDICATION
     Route: 048
     Dates: start: 20040101
  2. YASMIN [Suspect]
     Dosage: UNK
     Dates: start: 20060101

REACTIONS (4)
  - ANAEMIA [None]
  - BRAIN HYPOXIA [None]
  - VAGINAL HAEMORRHAGE [None]
  - SYNCOPE [None]
